FAERS Safety Report 13067352 (Version 1)
Quarter: 2016Q4

REPORT INFORMATION
  Report Type: Spontaneous
  Country: CA (occurrence: CA)
  Receive Date: 20161228
  Receipt Date: 20161228
  Transmission Date: 20170207
  Serious: Yes (Other)
  Sender: FDA-Public Use
  Company Number: CA-ALEMBIC PHARMACUETICALS LIMITED-2016SCAL001016

PATIENT

DRUGS (1)
  1. LEFLUNOMIDE. [Suspect]
     Active Substance: LEFLUNOMIDE
     Indication: RHEUMATOID ARTHRITIS
     Dosage: UNK

REACTIONS (7)
  - Drug ineffective [Unknown]
  - Nausea [Unknown]
  - Alopecia [Unknown]
  - Abdominal pain upper [Unknown]
  - Infection [Unknown]
  - Diarrhoea [Unknown]
  - Hepatotoxicity [Unknown]
